FAERS Safety Report 16179297 (Version 1)
Quarter: 2019Q2

REPORT INFORMATION
  Report Type: Spontaneous
  Country: FR (occurrence: FR)
  Receive Date: 20190410
  Receipt Date: 20190410
  Transmission Date: 20190711
  Serious: Yes (Other)
  Sender: FDA-Public Use
  Company Number: FR-TEVA-2019-FR-1035081

PATIENT
  Age: 3 Year
  Sex: Male

DRUGS (6)
  1. VANCOMYCIN [Suspect]
     Active Substance: VANCOMYCIN
     Indication: TYMPANIC MEMBRANE PERFORATION
     Dosage: 60 MG/KG DAILY; DOSE WAS INCREASED ON DAY 3
     Route: 065
  2. CEFOTAXIME [Suspect]
     Active Substance: CEFOTAXIME SODIUM
     Indication: OTITIS MEDIA ACUTE
     Dosage: 200 MG/KG DAILY;
     Route: 065
  3. AMOXICILLIN. [Suspect]
     Active Substance: AMOXICILLIN
     Indication: TYMPANIC MEMBRANE PERFORATION
  4. AMOXICILLIN. [Suspect]
     Active Substance: AMOXICILLIN
     Indication: OTITIS MEDIA ACUTE
     Dosage: 80 MG/KG DAILY;
     Route: 065
  5. CEFOTAXIME [Suspect]
     Active Substance: CEFOTAXIME SODIUM
     Indication: TYMPANIC MEMBRANE PERFORATION
     Dosage: 300 MG/KG DAILY; DOSE WAS INCREASED ON DAY 3
     Route: 065
  6. VANCOMYCIN [Suspect]
     Active Substance: VANCOMYCIN
     Indication: OTITIS MEDIA ACUTE
     Dosage: 40 MG/KG DAILY;
     Route: 065

REACTIONS (2)
  - Meningism [Unknown]
  - Pyrexia [Recovered/Resolved]
